FAERS Safety Report 10024221 (Version 1)
Quarter: 2014Q1

REPORT INFORMATION
  Report Type: Spontaneous
  Country: US (occurrence: US)
  Receive Date: 20140320
  Receipt Date: 20140320
  Transmission Date: 20141002
  Serious: No
  Sender: FDA-Public Use
  Company Number: US-PFIZER INC-2014079710

PATIENT
  Age: 28 Year
  Sex: Male
  Weight: 80.27 kg

DRUGS (3)
  1. GEODON [Suspect]
     Indication: MOOD ALTERED
     Dosage: UNK
  2. ERYTHROMYCIN [Concomitant]
     Dosage: UNK
  3. CLINDAMYCIN [Concomitant]
     Dosage: UNK

REACTIONS (1)
  - Drug ineffective for unapproved indication [Unknown]
